FAERS Safety Report 5914270-1 (Version None)
Quarter: 2008Q4

REPORT INFORMATION
  Report Type: 
  Country: None (occurrence: None)
  Receive Date: 20081009
  Receipt Date: 20080926
  Transmission Date: 20090506
  Serious: Yes (Hospitalization, Other)
  Sender: FDA-Public Use
  Company Number: US-ELI_LILLY_AND_COMPANY-US200809006581

PATIENT
  Sex: Female

DRUGS (4)
  1. FORTEO [Suspect]
     Dosage: UNKNOWN
  2. FORTEO [Suspect]
     Dosage: UNKNOWN
  3. CALCIUM [Concomitant]
  4. VITAMINS [Concomitant]

REACTIONS (4)
  - BRADYPHRENIA [None]
  - FALL [None]
  - LOWER LIMB FRACTURE [None]
  - MEMORY IMPAIRMENT [None]
